FAERS Safety Report 15740374 (Version 1)
Quarter: 2018Q4

REPORT INFORMATION
  Report Type: Spontaneous
  Country: GB (occurrence: GB)
  Receive Date: 20181219
  Receipt Date: 20181219
  Transmission Date: 20190205
  Serious: No
  Sender: FDA-Public Use
  Company Number: GB-MARKSANS PHARMA LIMITED-2060376

PATIENT
  Sex: Male

DRUGS (1)
  1. METFORMIN MOLECULE FROM UK MARKET [Suspect]
     Active Substance: METFORMIN HYDROCHLORIDE
     Indication: INSULIN-REQUIRING TYPE 2 DIABETES MELLITUS
     Route: 048

REACTIONS (2)
  - Vitamin B12 deficiency [None]
  - Pernicious anaemia [None]
